FAERS Safety Report 5007934-8 (Version None)
Quarter: 2006Q2

REPORT INFORMATION
  Report Type: 
  Country: None (occurrence: None)
  Receive Date: 20060518
  Receipt Date: 20060509
  Transmission Date: 20061013
  Serious: Yes (Hospitalization)
  Sender: FDA-Public Use
  Company Number: GXKR2006BR02676

PATIENT
  Age: 3 Year
  Sex: Female

DRUGS (1)
  1. AMOXICILLIN+CLAVULANATE (NGX) (AMOXICILLIN, CLAVULANATE) [Suspect]
     Indication: SINUSITIS
     Dosage: 250MG/5ML, TID, ORAL
     Route: 048

REACTIONS (1)
  - PURPURA [None]
